FAERS Safety Report 25924592 (Version 1)
Quarter: 2025Q4

REPORT INFORMATION
  Report Type: Report from Study
  Country: CN (occurrence: CN)
  Receive Date: 20251015
  Receipt Date: 20251015
  Transmission Date: 20260118
  Serious: Yes (Death)
  Sender: ROCHE
  Company Number: CN-ROCHE-10000410971

PATIENT
  Age: 54 Year
  Sex: Male

DRUGS (2)
  1. AVASTIN [Suspect]
     Active Substance: BEVACIZUMAB
     Indication: Rectal cancer metastatic
     Dosage: 300 MG/TIME
     Route: 042
     Dates: start: 20150324
  2. AVASTIN [Suspect]
     Active Substance: BEVACIZUMAB
     Dosage: 500 MG/TIME
     Route: 042
     Dates: start: 20160519

REACTIONS (1)
  - Death [Fatal]
